FAERS Safety Report 5396665-0 (Version None)
Quarter: 2007Q3

REPORT INFORMATION
  Report Type: 
  Country: None (occurrence: None)
  Receive Date: 20070725
  Receipt Date: 20070717
  Transmission Date: 20080115
  Serious: Yes (Other)
  Sender: FDA-Public Use
  Company Number: B0480202A

PATIENT
  Age: 25 Year
  Sex: Male

DRUGS (1)
  1. AROPAX [Suspect]
     Route: 065
     Dates: start: 20050101

REACTIONS (13)
  - AGGRESSION [None]
  - AGITATION [None]
  - ANXIETY [None]
  - DRY MOUTH [None]
  - HEADACHE [None]
  - HYPERHIDROSIS [None]
  - INSOMNIA [None]
  - MORBID THOUGHTS [None]
  - PARAESTHESIA [None]
  - STOMACH DISCOMFORT [None]
  - SUICIDE ATTEMPT [None]
  - THINKING ABNORMAL [None]
  - TREMOR [None]
